FAERS Safety Report 13485014 (Version 1)
Quarter: 2017Q2

REPORT INFORMATION
  Report Type: Spontaneous
  Country: BR (occurrence: BR)
  Receive Date: 20170425
  Receipt Date: 20170425
  Transmission Date: 20170830
  Serious: Yes (Other)
  Sender: FDA-Public Use
  Company Number: BR-009507513-1704BRA011602

PATIENT
  Age: 46 Year
  Sex: Male
  Weight: 86 kg

DRUGS (4)
  1. INSULIN LISPRO [Concomitant]
     Active Substance: INSULIN LISPRO
     Indication: TYPE 1 DIABETES MELLITUS
     Dosage: UNK
     Route: 058
     Dates: start: 201608
  2. ISOPHANE INSULIN [Suspect]
     Active Substance: INSULIN NOS
     Indication: TYPE 1 DIABETES MELLITUS
     Dosage: UNK, 18 IU AT LUNCH AND 8 IU IN DINNER
     Route: 058
     Dates: start: 1997
  3. TRUSOPT [Suspect]
     Active Substance: DORZOLAMIDE HYDROCHLORIDE
     Indication: PROPHYLAXIS
     Dosage: 1 GTT, BID,1 DROPS EACH 12 HOURS IN THE RIGHT EYE
     Dates: start: 201609, end: 201611
  4. LUCENTIS [Concomitant]
     Active Substance: RANIBIZUMAB
     Indication: DIABETIC RETINOPATHY
     Dosage: 1 DF, QM, DURING 3 MONTHS
     Dates: start: 201608, end: 201611

REACTIONS (4)
  - Retinal vascular disorder [Not Recovered/Not Resolved]
  - Drug prescribing error [Unknown]
  - Retinopathy [Not Recovered/Not Resolved]
  - Product use issue [Unknown]

NARRATIVE: CASE EVENT DATE: 201609
